FAERS Safety Report 6711188-1 (Version None)
Quarter: 2010Q2

REPORT INFORMATION
  Report Type: 
  Country: None (occurrence: None)
  Receive Date: 20100505
  Receipt Date: 20100423
  Transmission Date: 20101027
  Serious: Yes (Other)
  Sender: FDA-Public Use
  Company Number: FR-JNJFOC-20100303500

PATIENT
  Age: 47 Year
  Sex: Male

DRUGS (4)
  1. INFLIXIMAB [Suspect]
     Indication: PSORIASIS
     Dosage: GIVEN AT 0, 2 AND 6 WEEKS
     Route: 042
  2. INFLIXIMAB [Suspect]
     Route: 042
  3. INFLIXIMAB [Suspect]
     Indication: PSORIATIC ARTHROPATHY
     Dosage: GIVEN AT 0, 2 AND 6 WEEKS
     Route: 042
  4. INFLIXIMAB [Suspect]
     Route: 042

REACTIONS (4)
  - ASTHENIA [None]
  - CUTANEOUS SARCOIDOSIS [None]
  - INFLAMMATORY PAIN [None]
  - PSORIASIS [None]
